FAERS Safety Report 9407673 (Version 1)
Quarter: 2013Q3

REPORT INFORMATION
  Report Type: Spontaneous
  Country: US (occurrence: None)
  Receive Date: 20130717
  Receipt Date: 20130717
  Transmission Date: 20140515
  Serious: Yes (Other)
  Sender: FDA-Public Use
  Company Number: None

PATIENT
  Age: 21 Year
  Sex: Female

DRUGS (1)
  1. SOLODYN [Suspect]
     Indication: ACNE
     Route: 048

REACTIONS (2)
  - Urticaria [None]
  - Lip swelling [None]
